APPROVED DRUG PRODUCT: PREGABALIN
Active Ingredient: PREGABALIN
Strength: 100MG
Dosage Form/Route: CAPSULE;ORAL
Application: A208113 | Product #005 | TE Code: AB
Applicant: REGCON HOLDINGS LLC
Approved: May 17, 2024 | RLD: No | RS: No | Type: RX